FAERS Safety Report 8516604-0 (Version None)
Quarter: 2012Q3

REPORT INFORMATION
  Report Type: 
  Country: None (occurrence: None)
  Receive Date: 20120718
  Receipt Date: 20120601
  Transmission Date: 20120928
  Serious: No
  Sender: FDA-Public Use
  Company Number: US-BAYER-2012-054899

PATIENT
  Age: 57 Year
  Sex: Female

DRUGS (2)
  1. ESTRADIOL [Suspect]
     Dosage: 0.025 MG, UNK
     Route: 062
  2. HYDROCHLOROTHIAZIDE [Concomitant]
     Indication: HYPERTENSION

REACTIONS (5)
  - APPLICATION SITE EROSION [None]
  - PAIN OF SKIN [None]
  - APPLICATION SITE ERYTHEMA [None]
  - SKIN DISORDER [None]
  - SKIN REACTION [None]
